FAERS Safety Report 9182574 (Version 1)
Quarter: 2013Q1

REPORT INFORMATION
  Report Type: Spontaneous
  Country: US (occurrence: US)
  Receive Date: 20130322
  Receipt Date: 20130322
  Transmission Date: 20140127
  Serious: Yes (Other)
  Sender: FDA-Public Use
  Company Number: US-BRISTOL-MYERS SQUIBB COMPANY-16829731

PATIENT
  Age: 63 Year
  Sex: Female
  Weight: 135.14 kg

DRUGS (1)
  1. ERBITUX [Suspect]
     Indication: THROAT CANCER
     Dosage: DOSE REDUCED
     Dates: start: 2012, end: 201207

REACTIONS (2)
  - Rash [Recovering/Resolving]
  - Alopecia [Unknown]
